FAERS Safety Report 24030353 (Version 1)
Quarter: 2024Q2

REPORT INFORMATION
  Report Type: Other
  Country: DE (occurrence: DE)
  Receive Date: 20240628
  Receipt Date: 20240628
  Transmission Date: 20240716
  Serious: Yes (Hospitalization)
  Sender: FDA-Public Use
  Company Number: DE-BAYER-2024A026509

PATIENT
  Sex: Male

DRUGS (2)
  1. GADOLINIUM [Suspect]
     Active Substance: GADOLINIUM
     Indication: Magnetic resonance imaging
     Dosage: 5 INJECTIONS IN TOTAL
     Route: 065
  2. GADOBUTROL [Suspect]
     Active Substance: GADOBUTROL
     Indication: Magnetic resonance imaging
     Dosage: UNK UNK, TOTAL
     Route: 065
     Dates: start: 202312, end: 202312

REACTIONS (13)
  - Nontherapeutic agent blood positive [Unknown]
  - Pharyngeal swelling [Recovered/Resolved]
  - Hypoaesthesia [Unknown]
  - Myalgia [Unknown]
  - Nontherapeutic agent urine positive [Unknown]
  - Night sweats [Unknown]
  - Sleep disorder [Unknown]
  - Arthralgia [Unknown]
  - Muscular weakness [Unknown]
  - Heart rate increased [Unknown]
  - Tremor [Unknown]
  - Hyperhidrosis [Unknown]
  - Headache [Unknown]

NARRATIVE: CASE EVENT DATE: 20231201
